FAERS Safety Report 7688670-6 (Version None)
Quarter: 2011Q3

REPORT INFORMATION
  Report Type: 
  Country: None (occurrence: None)
  Receive Date: 20110817
  Receipt Date: 20110727
  Transmission Date: 20111222
  Serious: Yes (Death, Hospitalization)
  Sender: FDA-Public Use
  Company Number: US-GLAXOSMITHKLINE-A0873905A

PATIENT
  Age: 63 Year
  Sex: Male

DRUGS (3)
  1. AVANDIA [Suspect]
     Indication: DIABETES MELLITUS
     Dosage: 2MG TWICE PER DAY
     Dates: start: 20050218, end: 20080101
  2. METFORMIN HCL [Concomitant]
  3. INSULIN [Concomitant]

REACTIONS (3)
  - DEATH [None]
  - CHEST PAIN [None]
  - MYOCARDIAL INFARCTION [None]
